FAERS Safety Report 26127146 (Version 2)
Quarter: 2025Q4

REPORT INFORMATION
  Report Type: Spontaneous
  Country: EU (occurrence: EU)
  Receive Date: 20251205
  Receipt Date: 20251231
  Transmission Date: 20260118
  Serious: Yes (Other)
  Sender: ZAMBON
  Company Number: EU-ZAMBON-2025001099

PATIENT

DRUGS (2)
  1. FOSFOMYCIN TROMETHAMINE [Suspect]
     Active Substance: FOSFOMYCIN TROMETHAMINE
     Indication: Cystitis haemorrhagic
     Dosage: 1 SACHET PER DAY AS PER TECHNICAL SHEET
     Route: 048
     Dates: start: 20251106, end: 20251107
  2. FOSFOMYCIN [Suspect]
     Active Substance: FOSFOMYCIN
     Indication: Cystitis
     Dosage: 1 DOSAGE FORM
     Route: 048
     Dates: start: 20251212, end: 20251214

REACTIONS (3)
  - Dysentery [Recovering/Resolving]
  - Gastrooesophageal reflux disease [Recovering/Resolving]
  - Product use issue [Unknown]

NARRATIVE: CASE EVENT DATE: 20251106
